FAERS Safety Report 20687524 (Version 7)
Quarter: 2023Q4

REPORT INFORMATION
  Report Type: Report from Study
  Country: US (occurrence: US)
  Receive Date: 20220408
  Receipt Date: 20231220
  Transmission Date: 20240109
  Serious: Yes (Hospitalization, Other)
  Sender: FDA-Public Use
  Company Number: US-TAKEDA-2022TUS022319

PATIENT
  Sex: Female

DRUGS (1)
  1. HUMAN IMMUNOGLOBULIN G [Suspect]
     Active Substance: HUMAN IMMUNOGLOBULIN G
     Indication: Primary immunodeficiency syndrome
     Dosage: UNK
     Route: 065

REACTIONS (15)
  - COVID-19 [Unknown]
  - Large intestinal haemorrhage [Unknown]
  - Tracheomalacia [Unknown]
  - Haemorrhage [Unknown]
  - Cerebrovascular accident [Unknown]
  - Skin laceration [Unknown]
  - Ligament sprain [Unknown]
  - Lung disorder [Unknown]
  - Illness [Unknown]
  - Fall [Unknown]
  - Upper limb fracture [Unknown]
  - Respiratory tract infection [Unknown]
  - Gastrointestinal disorder [Unknown]
  - Malaise [Unknown]
  - Vomiting [Unknown]
